FAERS Safety Report 24318395 (Version 1)
Quarter: 2024Q3

REPORT INFORMATION
  Report Type: Spontaneous
  Country: US (occurrence: None)
  Receive Date: 20240913
  Receipt Date: 20240913
  Transmission Date: 20241017
  Serious: Yes (Other)
  Sender: Public
  Company Number: None

PATIENT
  Age: 54 Year
  Sex: Male
  Weight: 97 kg

DRUGS (2)
  1. GAMMAPLEX [Suspect]
     Active Substance: HUMAN IMMUNOGLOBULIN G
     Dosage: 80 G GRAM(S) EVERY 3 WEEKS INTRAVENOUS
     Route: 042
  2. GAMMAPLEX [Suspect]
     Active Substance: HUMAN IMMUNOGLOBULIN G
     Dosage: 15 G GRAM(S) EVERY 3 WEEKS INTRAVENOUS
     Route: 042
     Dates: start: 20231109, end: 20240309

REACTIONS (2)
  - Pulmonary embolism [None]
  - Therapy interrupted [None]

NARRATIVE: CASE EVENT DATE: 20240321
